FAERS Safety Report 25069411 (Version 2)
Quarter: 2025Q2

REPORT INFORMATION
  Report Type: Spontaneous
  Country: US (occurrence: US)
  Receive Date: 20250312
  Receipt Date: 20250409
  Transmission Date: 20250717
  Serious: Yes (Hospitalization, Other)
  Sender: JAZZ
  Company Number: US-JAZZ PHARMACEUTICALS-2025-US-006299

PATIENT
  Age: 45 Year
  Sex: Female

DRUGS (2)
  1. XYWAV [Suspect]
     Active Substance: CALCIUM OXYBATE\MAGNESIUM OXYBATE\POTASSIUM OXYBATE\SODIUM OXYBATE
     Indication: Product used for unknown indication
  2. BISOPROLOL [Suspect]
     Active Substance: BISOPROLOL
     Indication: Product used for unknown indication

REACTIONS (9)
  - Suspected suicide attempt [Recovered/Resolved]
  - Depressed level of consciousness [Recovered/Resolved]
  - Agitation [Recovered/Resolved]
  - Bradycardia [Recovered/Resolved]
  - Hyperthermia [Recovered/Resolved]
  - Hypertension [Recovered/Resolved]
  - Nervous system disorder [Recovered/Resolved]
  - Overdose [Recovered/Resolved]
  - Mutism [Recovered/Resolved]
